FAERS Safety Report 7709582-5 (Version None)
Quarter: 2011Q3

REPORT INFORMATION
  Report Type: 
  Country: None (occurrence: None)
  Receive Date: 20110822
  Receipt Date: 20110810
  Transmission Date: 20111222
  Serious: Yes (Life-Threatening)
  Sender: FDA-Public Use
  Company Number: 1009726

PATIENT
  Age: 72 Year
  Sex: Female

DRUGS (1)
  1. PACLITAXEL [Suspect]
     Indication: OVARIAN CANCER
     Dosage: 280 MG MILLIGRAM(S), INTRAVENOUS
     Route: 042
     Dates: start: 20110803

REACTIONS (3)
  - FLUSHING [None]
  - CARDIO-RESPIRATORY ARREST [None]
  - PARAESTHESIA [None]
